FAERS Safety Report 9251700 (Version 1)
Quarter: 2013Q1

REPORT INFORMATION
  Report Type: Spontaneous
  Country: US (occurrence: None)
  Receive Date: 20130305
  Receipt Date: 20130305
  Transmission Date: 20140127
  Serious: Yes (Disabling)
  Sender: FDA-Public Use
  Company Number: 163-21880-12091249

PATIENT
  Age: 56 Year
  Sex: Male

DRUGS (6)
  1. REVLIMID (LENALIDOMIDE) (CAPSULES) [Suspect]
     Indication: PLASMA CELL MYELOMA
     Dosage: 5 MG, ON MONDAY, WEDNESDAY AND FRIDAY, PO
     Route: 048
     Dates: start: 20120725
  2. NEURONTIN (GABAPENTIN) [Concomitant]
  3. EFFEXOR (VENLAFAXINE HYDROCHLORIDE) UNKNOWN [Concomitant]
  4. DILAUDID (HYDROMORPHONE HYDROCHLORIDE) [Concomitant]
  5. ACTOS (PIOGLITAZONE) [Concomitant]
  6. RANITIDINE (RANITIDINE) [Concomitant]

REACTIONS (2)
  - Renal failure [None]
  - Hypotension [None]
